FAERS Safety Report 9720752 (Version 2)
Quarter: 2013Q4

REPORT INFORMATION
  Report Type: Spontaneous
  Country: DE (occurrence: DE)
  Receive Date: 20131129
  Receipt Date: 20131129
  Transmission Date: 20140711
  Serious: Yes (Other)
  Sender: FDA-Public Use
  Company Number: PHHY2013DE092984

PATIENT
  Age: 82 Year
  Sex: Female
  Weight: 60 kg

DRUGS (1)
  1. ESTRADOT [Suspect]
     Indication: OSTEOPOROSIS PROPHYLAXIS
     Dosage: 25 UG/HR, BIW
     Route: 062
     Dates: end: 201308

REACTIONS (1)
  - Uterine enlargement [Unknown]
